FAERS Safety Report 14479269 (Version 2)
Quarter: 2018Q1

REPORT INFORMATION
  Report Type: Report from Study
  Country: US (occurrence: US)
  Receive Date: 20180202
  Receipt Date: 20180319
  Transmission Date: 20180509
  Serious: Yes (Hospitalization, Other)
  Sender: FDA-Public Use
  Company Number: US-TEVA-2018-US-853053

PATIENT
  Age: 63 Year
  Sex: Male
  Weight: 81 kg

DRUGS (26)
  1. AZITHROMYCIN ANHYDROUS. [Concomitant]
     Active Substance: AZITHROMYCIN ANHYDROUS
  2. FUROSEMIDE. [Concomitant]
     Active Substance: FUROSEMIDE
  3. LOSARTAN. [Concomitant]
     Active Substance: LOSARTAN
  4. NTE SL [Concomitant]
  5. SEVELAMAR [Concomitant]
  6. RENVELA [Concomitant]
     Active Substance: SEVELAMER CARBONATE
  7. AMLODIPINE [Concomitant]
     Active Substance: AMLODIPINE BESYLATE
     Route: 065
  8. TYLENOL [Concomitant]
     Active Substance: ACETAMINOPHEN
     Route: 065
  9. CINACALCET. [Concomitant]
     Active Substance: CINACALCET
  10. TOPROL XL [Concomitant]
     Active Substance: METOPROLOL SUCCINATE
  11. ALLOPURINOL. [Concomitant]
     Active Substance: ALLOPURINOL
     Route: 065
  12. ATORVASTATIN [Concomitant]
     Active Substance: ATORVASTATIN
  13. TOPROL XL [Concomitant]
     Active Substance: METOPROLOL SUCCINATE
  14. DOCUSATE [Concomitant]
     Active Substance: DOCUSATE
  15. TAMSULOSIN [Concomitant]
     Active Substance: TAMSULOSIN
  16. CARVEDILOL. [Concomitant]
     Active Substance: CARVEDILOL
  17. CLOZARIL [Concomitant]
     Active Substance: CLOZAPINE
  18. CLOZAPINE. [Suspect]
     Active Substance: CLOZAPINE
     Indication: SCHIZOAFFECTIVE DISORDER
     Route: 065
  19. CEFEPIME [Concomitant]
     Active Substance: CEFEPIME HYDROCHLORIDE
  20. LISINOPRIL. [Concomitant]
     Active Substance: LISINOPRIL
  21. NOVOLOG [Concomitant]
     Active Substance: INSULIN ASPART
  22. APAP [Concomitant]
     Active Substance: ACETAMINOPHEN
     Route: 065
  23. CTX [Concomitant]
  24. FELOUXOSTAT [Concomitant]
  25. LIPITOR [Concomitant]
     Active Substance: ATORVASTATIN CALCIUM
  26. LISINOPRIL. [Concomitant]
     Active Substance: LISINOPRIL

REACTIONS (6)
  - Pyrexia [Unknown]
  - Pain [Unknown]
  - Hypoxia [Unknown]
  - Thrombocytopenia [Not Recovered/Not Resolved]
  - Disturbance in attention [Unknown]
  - Neutropenia [Not Recovered/Not Resolved]

NARRATIVE: CASE EVENT DATE: 20180117
